FAERS Safety Report 11240535 (Version 1)
Quarter: 2015Q3

REPORT INFORMATION
  Report Type: Spontaneous
  Country: US (occurrence: None)
  Receive Date: 20150701
  Receipt Date: 20150701
  Transmission Date: 20151125
  Serious: No
  Sender: FDA-Public Use
  Company Number: None

PATIENT
  Age: 46 Year
  Sex: Male

DRUGS (4)
  1. TESTOSTERONE. [Concomitant]
     Active Substance: TESTOSTERONE
  2. HCG 10, 000 [Suspect]
     Active Substance: GONADOTROPHIN, CHORIONIC
     Indication: HYPOTHALAMO-PITUITARY DISORDER
     Dosage: 5,000 MDV
     Route: 030
     Dates: start: 20140815
  3. LISINOPRIL. [Concomitant]
     Active Substance: LISINOPRIL
  4. ANASTROZOLA [Concomitant]

REACTIONS (1)
  - Drug dose omission [None]
